FAERS Safety Report 9587994 (Version 1)
Quarter: 2013Q4

REPORT INFORMATION
  Report Type: Spontaneous
  Country: US (occurrence: US)
  Receive Date: 20131003
  Receipt Date: 20131003
  Transmission Date: 20140711
  Serious: No
  Sender: FDA-Public Use
  Company Number: US-AMGEN-USASP2012067573

PATIENT
  Sex: Female

DRUGS (18)
  1. ENBREL [Suspect]
     Indication: RHEUMATOID ARTHRITIS
     Dosage: 50 MG, QWK
     Route: 058
  2. LANTUS [Concomitant]
     Dosage: 100/ML, UNK, UNK
  3. NOVOLIN N [Concomitant]
     Dosage: UNK
  4. PENFILL R [Concomitant]
     Dosage: UNK
  5. NOVOLOG [Concomitant]
     Dosage: 100 ML, UNK
  6. GLUCOPHAGE [Concomitant]
     Dosage: 500 MG, UNK
  7. DIOVAN [Concomitant]
     Dosage: 320 MG, UNK
  8. TRICOR                             /00090101/ [Concomitant]
     Dosage: 145 MG, UNK
  9. ZETIA [Concomitant]
     Dosage: 10 MG, UNK
  10. PRAVACHOL [Concomitant]
     Dosage: 10 MG, UNK
  11. CELEXA                             /00582602/ [Concomitant]
     Dosage: 10 MG, UNK
  12. WELLBUTRIN [Concomitant]
     Dosage: 100 MG, UNK
  13. MIRAPEX [Concomitant]
     Dosage: 0.25 MG, UNK
  14. LOVAZA [Concomitant]
     Dosage: 1 G, UNK
  15. VITAMIN E                          /00110501/ [Concomitant]
     Dosage: 1000 UNIT, UNK
  16. LORTAB                             /00607101/ [Concomitant]
     Dosage: 7.5 UNK, UNK
  17. FLEXERIL                           /00428402/ [Concomitant]
     Dosage: 5 MG, UNK
  18. MULTIVITAMINS, PLAIN [Concomitant]
     Dosage: UNK

REACTIONS (1)
  - Injection site pain [Unknown]
